FAERS Safety Report 16376517 (Version 1)
Quarter: 2019Q3

REPORT INFORMATION
  Report Type: Spontaneous
  Country: US (occurrence: US)
  Receive Date: 20190530
  Receipt Date: 20190530
  Transmission Date: 20191004
  Serious: Yes (Other)
  Sender: FDA-Public Use
  Company Number: None

PATIENT
  Age: 62 Year
  Sex: Female
  Weight: 52.97 kg

DRUGS (13)
  1. SPIRULINA [Concomitant]
     Active Substance: SPIRULINA
  2. GINGER. [Concomitant]
     Active Substance: GINGER
  3. DRONABINOL. [Concomitant]
     Active Substance: DRONABINOL
  4. FLUTICASONE PROPIONATE. [Concomitant]
     Active Substance: FLUTICASONE PROPIONATE
  5. ASHWAGANDHA [Concomitant]
     Active Substance: HERBALS
  6. TURMERIC [Concomitant]
     Active Substance: HERBALS\TURMERIC
  7. ESZOPICLONE. [Concomitant]
     Active Substance: ESZOPICLONE
  8. LORAZEPAM. [Concomitant]
     Active Substance: LORAZEPAM
  9. ONDANSETRON HCL [Concomitant]
     Active Substance: ONDANSETRON HYDROCHLORIDE
  10. LORATADINE. [Concomitant]
     Active Substance: LORATADINE
  11. CHOLESTYRAMINE. [Concomitant]
     Active Substance: CHOLESTYRAMINE
  12. PROCHLORPERAZINE MALEATE. [Concomitant]
     Active Substance: PROCHLORPERAZINE MALEATE
  13. VOTRIENT [Suspect]
     Active Substance: PAZOPANIB HYDROCHLORIDE
     Indication: OVARIAN CANCER
     Route: 048
     Dates: start: 20190129, end: 20190506

REACTIONS (1)
  - Diarrhoea [None]
